FAERS Safety Report 14368501 (Version 2)
Quarter: 2018Q1

REPORT INFORMATION
  Report Type: Spontaneous
  Country: US (occurrence: US)
  Receive Date: 20180109
  Receipt Date: 20180115
  Transmission Date: 20180509
  Serious: Yes (Hospitalization)
  Sender: FDA-Public Use
  Company Number: US-LUNDBECK-DKLU2042172

PATIENT
  Age: 69 Year
  Sex: Female

DRUGS (4)
  1. NORTHERA [Suspect]
     Active Substance: DROXIDOPA
     Indication: ORTHOSTATIC HYPOTENSION
     Dosage: TITRATION SCHEDULE C
     Route: 048
     Dates: start: 20171215
  2. NORTHERA [Suspect]
     Active Substance: DROXIDOPA
     Indication: DIZZINESS
  3. NORTHERA [Suspect]
     Active Substance: DROXIDOPA
     Indication: CARDIAC DISORDER
  4. NORTHERA [Suspect]
     Active Substance: DROXIDOPA
     Indication: PARKINSON^S DISEASE
     Dosage: TITRATION SCHEDULE C
     Route: 048
     Dates: start: 20171209

REACTIONS (9)
  - Dizziness [Recovered/Resolved]
  - Joint injury [Recovered/Resolved]
  - Head injury [Unknown]
  - Balance disorder [Unknown]
  - Fall [Recovered/Resolved]
  - Concussion [Recovered/Resolved]
  - Blood pressure decreased [Recovered/Resolved]
  - Spinal column injury [Unknown]
  - Amnesia [Recovered/Resolved]

NARRATIVE: CASE EVENT DATE: 20180103
